FAERS Safety Report 20205705 (Version 1)
Quarter: 2021Q4

REPORT INFORMATION
  Report Type: Other
  Country: BD (occurrence: None)
  Receive Date: 20211220
  Receipt Date: 20211220
  Transmission Date: 20220303
  Serious: Yes (Other)
  Sender: FDA-Public Use
  Company Number: BD-ROCHE-2982557

PATIENT
  Age: 59 Year
  Sex: Female
  Weight: 73 kg

DRUGS (8)
  1. HERCEPTIN [Suspect]
     Active Substance: TRASTUZUMAB
     Indication: HER2 positive breast cancer
     Route: 058
  2. COVERAM [Concomitant]
     Active Substance: AMLODIPINE\PERINDOPRIL
     Dosage: 4/5 MG, L/2 TAB AT MORNING AND I TAB AT NIGHT _ CONTINUE
  3. BISOPROLOL [Concomitant]
     Active Substance: BISOPROLOL
  4. JARDIANCE [Concomitant]
     Active Substance: EMPAGLIFLOZIN
  5. ONDANSETRON [Concomitant]
     Active Substance: ONDANSETRON
     Indication: Nausea
  6. ONDANSETRON [Concomitant]
     Active Substance: ONDANSETRON
     Indication: Vomiting
  7. PANTOPRAZOLE [Concomitant]
     Active Substance: PANTOPRAZOLE
     Dosage: BEFORE MEAL - CONTINUE
  8. GRANISETRON [Concomitant]
     Active Substance: GRANISETRON
     Indication: Premedication
     Dates: start: 20210913

REACTIONS (1)
  - Disease progression [Unknown]

NARRATIVE: CASE EVENT DATE: 20211215
